FAERS Safety Report 14929204 (Version 1)
Quarter: 2018Q2

REPORT INFORMATION
  Report Type: Spontaneous
  Country: US (occurrence: US)
  Receive Date: 20180523
  Receipt Date: 20180523
  Transmission Date: 20180711
  Serious: No
  Sender: FDA-Public Use
  Company Number: US-GLAXOSMITHKLINE-US2018088647

PATIENT
  Sex: Female

DRUGS (1)
  1. ANORO ELLIPTA [Suspect]
     Active Substance: UMECLIDINIUM BROMIDE\VILANTEROL TRIFENATATE
     Indication: PRODUCT USED FOR UNKNOWN INDICATION
     Dosage: UNK
     Dates: start: 20180301, end: 20180401

REACTIONS (13)
  - Gastrooesophageal reflux disease [Unknown]
  - Metamorphopsia [Unknown]
  - Tendonitis [Unknown]
  - Eye pain [Unknown]
  - Constipation [Unknown]
  - Oropharyngeal pain [Unknown]
  - Ageusia [Unknown]
  - Facial spasm [Unknown]
  - Nausea [Unknown]
  - Sinusitis [Unknown]
  - Dry throat [Unknown]
  - Tremor [Unknown]
  - Musculoskeletal pain [Unknown]
